FAERS Safety Report 5063257-2 (Version None)
Quarter: 2006Q3

REPORT INFORMATION
  Report Type: 
  Country: None (occurrence: None)
  Receive Date: 20060703
  Receipt Date: 20060504
  Transmission Date: 20061208
  Serious: No
  Sender: FDA-Public Use
  Company Number: 2006PV013324

PATIENT
  Age: 56 Year
  Sex: Female
  Weight: 99.7913 kg

DRUGS (7)
  1. SYMLIN [Suspect]
     Indication: DIABETES MELLITUS NON-INSULIN-DEPENDENT
     Dosage: 120 MCG; TID; SC; 60 MCG; TID; SC
     Route: 058
     Dates: start: 20050901, end: 20050901
  2. SYMLIN [Suspect]
     Indication: DIABETES MELLITUS NON-INSULIN-DEPENDENT
     Dosage: 120 MCG; TID; SC; 60 MCG; TID; SC
     Route: 058
     Dates: start: 20050901
  3. NOVOLOG [Concomitant]
  4. LANTUS [Concomitant]
  5. ESTRADIOL INJ [Concomitant]
  6. METFORMIIN [Concomitant]
  7. HYZAAR [Concomitant]

REACTIONS (6)
  - BLOOD GLUCOSE INCREASED [None]
  - DRUG INEFFECTIVE [None]
  - HYPERHIDROSIS [None]
  - INJECTION SITE BRUISING [None]
  - MEDICATION ERROR [None]
  - NAUSEA [None]
